FAERS Safety Report 11398323 (Version 2)
Quarter: 2015Q3

REPORT INFORMATION
  Report Type: Spontaneous
  Country: FR (occurrence: FR)
  Receive Date: 20150820
  Receipt Date: 20150904
  Transmission Date: 20151125
  Serious: Yes (Hospitalization, Other)
  Sender: FDA-Public Use
  Company Number: FR-ROCHE-1623922

PATIENT
  Sex: Female

DRUGS (5)
  1. MICARDIS [Concomitant]
     Active Substance: TELMISARTAN
  2. AERIUS [Concomitant]
     Active Substance: DESLORATADINE
  3. SINGULAIR [Concomitant]
     Active Substance: MONTELUKAST SODIUM
  4. XOLAIR [Suspect]
     Active Substance: OMALIZUMAB
     Indication: ASTHMA
     Route: 058
     Dates: start: 2008, end: 2010
  5. XOLAIR [Suspect]
     Active Substance: OMALIZUMAB
     Indication: ASTHMA
     Route: 058
     Dates: start: 201001

REACTIONS (8)
  - Aphasia [Unknown]
  - Microcytic anaemia [Unknown]
  - Fatigue [Unknown]
  - Asthma [Recovered/Resolved]
  - Respiratory disorder [Unknown]
  - Hypertension [Unknown]
  - Respiratory acidosis [Recovering/Resolving]
  - Tachycardia [Unknown]

NARRATIVE: CASE EVENT DATE: 2010
